FAERS Safety Report 8596063-2 (Version None)
Quarter: 2012Q3

REPORT INFORMATION
  Report Type: 
  Country: None (occurrence: None)
  Receive Date: 20120815
  Receipt Date: 20120814
  Transmission Date: 20120928
  Serious: Yes (Life-Threatening, Hospitalization)
  Sender: FDA-Public Use
  Company Number: US-ROCHE-1101793

PATIENT
  Age: 74 Year
  Sex: Female
  Weight: 72 kg

DRUGS (4)
  1. HERCEPTIN [Suspect]
     Indication: BREAST CANCER
     Dosage: 4MG/KG OVER 90MIN (LOADING DOSE) ON DAY1 OF WK13 ONLY,2MG/KG OVER 30 MIN (MAINTENANCE DOSE) QWK FOR
     Route: 042
     Dates: start: 20020408
  2. DOXORUBICIN HYDROCHLORIDE [Suspect]
     Indication: BREAST CANCER
     Dosage: 60 MG/M2 INTRAVENOUS PUSH ON DAY 1 EVERY21 DAYS X 4,DATE OF LAST DRUG TAKEN PRIOR TO ONSET OF AE:18/
     Route: 042
     Dates: start: 20020408
  3. PACLITAXEL [Suspect]
     Indication: BREAST CANCER
     Dosage: 175 MG/M2 OVER 3 HR Q 21D STARTING DAY 1 OF WK 13X 4, DATE OF LAST DRUG TAKEN PRIOR TO ONSET OF AE:1
     Route: 042
     Dates: start: 20020408
  4. CYCLOPHOSPHAMIDE [Suspect]
     Indication: BREAST CANCER
     Dosage: 600 MG/M2 IV OVER 30 MIN, ON DAY 1 Q21 DAYX 4, DATE OF LAST DRUG TAKEN PRIOR TO ONSET OF AE:18/JUN/2
     Route: 042
     Dates: start: 20020408

REACTIONS (1)
  - MYELODYSPLASTIC SYNDROME [None]
